FAERS Safety Report 13454880 (Version 1)
Quarter: 2017Q2

REPORT INFORMATION
  Report Type: Spontaneous
  Country: JP (occurrence: JP)
  Receive Date: 20170418
  Receipt Date: 20170418
  Transmission Date: 20170830
  Serious: Yes (Other)
  Sender: FDA-Public Use
  Company Number: JP-TEVA-760071ROM

PATIENT
  Age: 67 Year
  Sex: Male

DRUGS (3)
  1. HEPARIN [Suspect]
     Active Substance: HEPARIN SODIUM
     Indication: ANTICOAGULANT THERAPY
     Dosage: INITIAL DOSE NOT STATED; LATER GIVEN AT 20000U/DAY
     Route: 065
  2. EDARAVONE [Concomitant]
     Active Substance: EDARAVONE
     Route: 065
  3. WARFARIN [Concomitant]
     Active Substance: WARFARIN
     Route: 065

REACTIONS (2)
  - Cerebellar haemorrhage [Unknown]
  - Activated partial thromboplastin time prolonged [Unknown]
